FAERS Safety Report 18473264 (Version 2)
Quarter: 2021Q4

REPORT INFORMATION
  Report Type: Report from Study
  Country: DE (occurrence: DE)
  Receive Date: 20201106
  Receipt Date: 20211124
  Transmission Date: 20220303
  Serious: Yes (Death, Hospitalization, Other)
  Sender: FDA-Public Use
  Company Number: DE-TAKEDA-DE202018099

PATIENT
  Age: 78 Year
  Sex: Male
  Weight: 69.841 kg

DRUGS (8)
  1. ANTIHEMOPHILIC FACTOR PORCINE, B-DOMAIN TRUNCATED RECOMBINANT [Suspect]
     Active Substance: ANTIHEMOPHILIC FACTOR PORCINE, B-DOMAIN TRUNCATED RECOMBINANT
     Indication: Acquired haemophilia
     Dosage: 43 INTERNATIONAL UNIT/KILOGRAM, 1X/DAY:QD
     Route: 042
     Dates: start: 20200515, end: 20200515
  2. ANTIHEMOPHILIC FACTOR PORCINE, B-DOMAIN TRUNCATED RECOMBINANT [Suspect]
     Active Substance: ANTIHEMOPHILIC FACTOR PORCINE, B-DOMAIN TRUNCATED RECOMBINANT
     Indication: Acquired haemophilia
     Dosage: 43 INTERNATIONAL UNIT/KILOGRAM, 1X/DAY:QD
     Route: 042
     Dates: start: 20200515, end: 20200515
  3. ANTIHEMOPHILIC FACTOR PORCINE, B-DOMAIN TRUNCATED RECOMBINANT [Suspect]
     Active Substance: ANTIHEMOPHILIC FACTOR PORCINE, B-DOMAIN TRUNCATED RECOMBINANT
     Dosage: 43 INTERNATIONAL UNIT/KILOGRAM, 1X/DAY:QD
     Route: 042
     Dates: start: 20200518, end: 20200518
  4. ANTIHEMOPHILIC FACTOR PORCINE, B-DOMAIN TRUNCATED RECOMBINANT [Suspect]
     Active Substance: ANTIHEMOPHILIC FACTOR PORCINE, B-DOMAIN TRUNCATED RECOMBINANT
     Dosage: 43 INTERNATIONAL UNIT/KILOGRAM, 1X/DAY:QD
     Route: 042
     Dates: start: 20200518, end: 20200518
  5. TRANEXAMIC ACID [Concomitant]
     Active Substance: TRANEXAMIC ACID
     Indication: Acquired haemophilia
  6. PANTOPRAZOLE [Concomitant]
     Active Substance: PANTOPRAZOLE
     Indication: Ulcer
  7. PANTOPRAZOLE [Concomitant]
     Active Substance: PANTOPRAZOLE
     Indication: Prophylaxis
  8. PREDNISOLONE [Concomitant]
     Active Substance: PREDNISOLONE
     Indication: Acquired haemophilia

REACTIONS (4)
  - Hepatic failure [Fatal]
  - Sepsis [Fatal]
  - Cholangitis [Not Recovered/Not Resolved]
  - Acute kidney injury [Not Recovered/Not Resolved]

NARRATIVE: CASE EVENT DATE: 20200516
